FAERS Safety Report 12179117 (Version 4)
Quarter: 2016Q2

REPORT INFORMATION
  Report Type: Spontaneous
  Country: CH (occurrence: CH)
  Receive Date: 20160315
  Receipt Date: 20160627
  Transmission Date: 20160815
  Serious: Yes (Death, Other)
  Sender: FDA-Public Use
  Company Number: PHHY2016CH034100

PATIENT
  Age: 52 Year
  Sex: Female

DRUGS (1)
  1. GILENYA [Suspect]
     Active Substance: FINGOLIMOD HYDROCHLORIDE
     Indication: MULTIPLE SCLEROSIS
     Dosage: 1 DF, QD
     Route: 065
     Dates: start: 201207

REACTIONS (16)
  - Diabetes insipidus [Unknown]
  - Vomiting [Fatal]
  - Urinary incontinence [Fatal]
  - Influenza [Unknown]
  - Vertebral artery dissection [Fatal]
  - Subarachnoid haemorrhage [Fatal]
  - Mydriasis [Fatal]
  - Haemodynamic instability [Fatal]
  - Hydrocephalus [Fatal]
  - Altered state of consciousness [Fatal]
  - Headache [Fatal]
  - Intraventricular haemorrhage [Fatal]
  - Brain death [Fatal]
  - Confusional state [Fatal]
  - Intracranial pressure increased [Fatal]
  - Pyrexia [Fatal]

NARRATIVE: CASE EVENT DATE: 20160127
